FAERS Safety Report 12108393 (Version 2)
Quarter: 2016Q1

REPORT INFORMATION
  Report Type: Spontaneous
  Country: US (occurrence: US)
  Receive Date: 20160224
  Receipt Date: 20160316
  Transmission Date: 20160526
  Serious: Yes (Hospitalization, Other)
  Sender: FDA-Public Use
  Company Number: US-BEH-2016058914

PATIENT
  Sex: Female
  Weight: 74 kg

DRUGS (23)
  1. CRESTOR [Concomitant]
     Active Substance: ROSUVASTATIN CALCIUM
  2. LISINOPRIL. [Concomitant]
     Active Substance: LISINOPRIL
  3. VITAMIN B COMPLEX [Concomitant]
     Active Substance: CYANOCOBALAMIN\DEXPANTHENOL\NIACINAMIDE\PYRIDOXINE HYDROCHLORIDE\RIBOFLAVIN 5^-PHOSPHATE SODIUM\THIAMINE HYDROCHLORIDE\VITAMIN B COMPLEX
  4. HIZENTRA [Suspect]
     Active Substance: HUMAN IMMUNOGLOBULIN G
     Route: 058
  5. LIDOCAINE. [Concomitant]
     Active Substance: LIDOCAINE
  6. LEVOTHYROXINE. [Concomitant]
     Active Substance: LEVOTHYROXINE
  7. SERTRALINE [Concomitant]
     Active Substance: SERTRALINE HYDROCHLORIDE
  8. NEXIUM [Concomitant]
     Active Substance: ESOMEPRAZOLE MAGNESIUM
  9. BACTRIM [Concomitant]
     Active Substance: SULFAMETHOXAZOLE\TRIMETHOPRIM
  10. DIPHENHYDRAMINE. [Concomitant]
     Active Substance: DIPHENHYDRAMINE
  11. KEFLEX [Concomitant]
     Active Substance: CEPHALEXIN
  12. RESTASIS [Concomitant]
     Active Substance: CYCLOSPORINE
  13. ASPIRIN. [Concomitant]
     Active Substance: ASPIRIN
  14. SEROQUEL [Concomitant]
     Active Substance: QUETIAPINE FUMARATE
  15. FOLIC ACID. [Concomitant]
     Active Substance: FOLIC ACID
  16. FERROUS GLUCONATE [Concomitant]
     Active Substance: FERROUS GLUCONATE
  17. HIZENTRA [Suspect]
     Active Substance: HUMAN IMMUNOGLOBULIN G
     Indication: IMMUNODEFICIENCY COMMON VARIABLE
     Route: 058
  18. ATENOLOL. [Concomitant]
     Active Substance: ATENOLOL
  19. OMEGA-3 FISH OIL [Concomitant]
     Active Substance: FISH OIL\OMEGA-3 FATTY ACIDS
  20. ALEVE [Concomitant]
     Active Substance: NAPROXEN SODIUM
  21. EPIPEN [Concomitant]
     Active Substance: EPINEPHRINE
  22. CENTRUM COMPLETE [Concomitant]
  23. KLONOPIN [Concomitant]
     Active Substance: CLONAZEPAM

REACTIONS (2)
  - Device related infection [Unknown]
  - Impaired healing [Unknown]
